FAERS Safety Report 4279484-8 (Version None)
Quarter: 2004Q1

REPORT INFORMATION
  Report Type: 
  Country: None (occurrence: None)
  Receive Date: 20040127
  Receipt Date: 20040115
  Transmission Date: 20041129
  Serious: Yes (Hospitalization)
  Sender: FDA-Public Use
  Company Number: CH-GLAXOSMITHKLINE-B0320292A

PATIENT
  Age: 29 Year
  Sex: Female

DRUGS (1)
  1. LAMIVUDINE [Suspect]
     Indication: HEPATITIS B
     Dosage: 100MG PER DAY
     Route: 048
     Dates: start: 20020207

REACTIONS (3)
  - ERYTHEMA [None]
  - SUBCUTANEOUS ABSCESS [None]
  - TENDERNESS [None]
